FAERS Safety Report 25500716 (Version 1)
Quarter: 2025Q3

REPORT INFORMATION
  Report Type: Spontaneous
  Country: CN (occurrence: CN)
  Receive Date: 20250701
  Receipt Date: 20250701
  Transmission Date: 20251021
  Serious: Yes (Other)
  Sender: PFIZER
  Company Number: CN-PFIZER INC-202500129334

PATIENT
  Age: 9 Decade

DRUGS (2)
  1. LORLATINIB [Suspect]
     Active Substance: LORLATINIB
     Route: 048
  2. LORLATINIB [Suspect]
     Active Substance: LORLATINIB
     Route: 048

REACTIONS (1)
  - Platelet count decreased [Unknown]
